FAERS Safety Report 4757484-9 (Version None)
Quarter: 2005Q3

REPORT INFORMATION
  Report Type: 
  Country: None (occurrence: None)
  Receive Date: 20050831
  Receipt Date: 20050628
  Transmission Date: 20060218
  Serious: Yes (Disabling)
  Sender: FDA-Public Use
  Company Number: US-MERCK-0506USA03904

PATIENT
  Age: 80 Year
  Sex: Female
  Weight: 55 kg

DRUGS (9)
  1. ZOCOR [Suspect]
     Indication: HYPERLIPIDAEMIA
     Route: 048
     Dates: start: 20050120, end: 20050608
  2. CALCIUM (UNSPECIFIED) [Concomitant]
     Route: 065
  3. VITAMINS (UNSPECIFIED) [Concomitant]
     Route: 065
  4. PRINIVIL [Concomitant]
     Route: 048
  5. ASPIRIN [Concomitant]
     Route: 065
  6. ACTONEL [Concomitant]
     Route: 065
  7. DIGITEK [Concomitant]
     Route: 065
  8. HYDRODIURIL [Concomitant]
     Route: 048
  9. TOPROL-XL [Concomitant]
     Route: 065

REACTIONS (5)
  - ARTHRALGIA [None]
  - ATRIAL FIBRILLATION [None]
  - BLOOD CREATINE PHOSPHOKINASE INCREASED [None]
  - MYALGIA [None]
  - MYOCARDIAL INFARCTION [None]
